FAERS Safety Report 17259506 (Version 3)
Quarter: 2021Q3

REPORT INFORMATION
  Report Type: Spontaneous
  Country: US (occurrence: US)
  Receive Date: 20200110
  Receipt Date: 20210915
  Transmission Date: 20211014
  Serious: Yes (Hospitalization, Other)
  Sender: FDA-Public Use
  Company Number: US-SHIRE-US202000618

PATIENT
  Age: 14 Year
  Sex: Male
  Weight: 47 kg

DRUGS (21)
  1. NATPARA (PARATHYROID HORMONE) [Suspect]
     Active Substance: PARATHYROID HORMONE
     Indication: HYPOPARATHYROIDISM
     Dosage: UNK
     Route: 065
     Dates: start: 201703
  2. NATPARA (PARATHYROID HORMONE) [Suspect]
     Active Substance: PARATHYROID HORMONE
     Dosage: 100 MICROGRAM, 1X/DAY:QD
     Route: 058
     Dates: start: 20200127
  3. CLOBAZAM. [Concomitant]
     Active Substance: CLOBAZAM
     Indication: PRODUCT USED FOR UNKNOWN INDICATION
     Dosage: 10 MILLIGRAM, BID
     Route: 048
  4. NATPARA (PARATHYROID HORMONE) [Suspect]
     Active Substance: PARATHYROID HORMONE
     Indication: HYPOPARATHYROIDISM
     Dosage: UNK
     Route: 065
     Dates: start: 201703
  5. NATPARA (PARATHYROID HORMONE) [Suspect]
     Active Substance: PARATHYROID HORMONE
     Dosage: 75 MICROGRAM, 1X/DAY:QD
     Route: 058
     Dates: start: 201708
  6. NATPARA (PARATHYROID HORMONE) [Suspect]
     Active Substance: PARATHYROID HORMONE
     Dosage: 100 MICROGRAM, 1X/DAY:QD
     Route: 058
     Dates: start: 201711
  7. NATPARA (PARATHYROID HORMONE) [Suspect]
     Active Substance: PARATHYROID HORMONE
     Dosage: 100 MICROGRAM, 1X/DAY:QD
     Route: 058
     Dates: start: 20200127
  8. CITRATE [Concomitant]
     Active Substance: CITRIC ACID MONOHYDRATE
     Indication: PRODUCT USED FOR UNKNOWN INDICATION
  9. NATPARA (PARATHYROID HORMONE) [Suspect]
     Active Substance: PARATHYROID HORMONE
     Dosage: 100 MICROGRAM, 1X/DAY:QD
     Route: 058
     Dates: start: 201711
  10. NATPARA (PARATHYROID HORMONE) [Suspect]
     Active Substance: PARATHYROID HORMONE
     Dosage: 100 MICROGRAM, 1X/DAY:QD
     Route: 058
     Dates: start: 201711
  11. CALCIUM [Concomitant]
     Active Substance: CALCIUM
     Indication: SUPPLEMENTATION THERAPY
  12. NATPARA (PARATHYROID HORMONE) [Suspect]
     Active Substance: PARATHYROID HORMONE
     Dosage: 100 MICROGRAM, 1X/DAY:QD
     Route: 058
     Dates: start: 201909
  13. NATPARA (PARATHYROID HORMONE) [Suspect]
     Active Substance: PARATHYROID HORMONE
     Dosage: 100 MICROGRAM, 1X/DAY:QD
     Route: 058
     Dates: start: 201909
  14. NATPARA (PARATHYROID HORMONE) [Suspect]
     Active Substance: PARATHYROID HORMONE
     Indication: HYPOPARATHYROIDISM
     Dosage: UNK
     Route: 065
     Dates: start: 201703
  15. NATPARA (PARATHYROID HORMONE) [Suspect]
     Active Substance: PARATHYROID HORMONE
     Dosage: 75 MICROGRAM, 1X/DAY:QD
     Route: 058
     Dates: start: 201708
  16. NATPARA (PARATHYROID HORMONE) [Suspect]
     Active Substance: PARATHYROID HORMONE
     Dosage: 100 MICROGRAM, 1X/DAY:QD
     Route: 058
     Dates: start: 20200127
  17. FORTEO [Concomitant]
     Active Substance: TERIPARATIDE
     Indication: PRODUCT USED FOR UNKNOWN INDICATION
  18. CALTRATE [Concomitant]
     Active Substance: CALCIUM CARBONATE
     Indication: PRODUCT USED FOR UNKNOWN INDICATION
  19. NATPARA (PARATHYROID HORMONE) [Suspect]
     Active Substance: PARATHYROID HORMONE
     Dosage: 75 MICROGRAM, 1X/DAY:QD
     Route: 058
     Dates: start: 201708
  20. NATPARA (PARATHYROID HORMONE) [Suspect]
     Active Substance: PARATHYROID HORMONE
     Dosage: 100 MICROGRAM, 1X/DAY:QD
     Route: 058
     Dates: start: 201909
  21. ONFI [Concomitant]
     Active Substance: CLOBAZAM
     Indication: PRODUCT USED FOR UNKNOWN INDICATION
     Dosage: 10 MILLIGRAM, BID
     Route: 048

REACTIONS (4)
  - Hypercalciuria [Unknown]
  - Hypocalcaemia [Unknown]
  - Hyperphosphataemia [Unknown]
  - Recalled product [Unknown]

NARRATIVE: CASE EVENT DATE: 20190906
